FAERS Safety Report 11049008 (Version 1)
Quarter: 2015Q2

REPORT INFORMATION
  Report Type: Spontaneous
  Country: US (occurrence: US)
  Receive Date: 20150420
  Receipt Date: 20150420
  Transmission Date: 20150821
  Serious: No
  Sender: FDA-Public Use
  Company Number: US-ELI_LILLY_AND_COMPANY-US200911005786

PATIENT
  Sex: Female

DRUGS (3)
  1. HUMALOG [Suspect]
     Active Substance: INSULIN LISPRO
     Indication: DIABETES MELLITUS
  2. HUMALOG [Suspect]
     Active Substance: INSULIN LISPRO
  3. HUMALOG [Suspect]
     Active Substance: INSULIN LISPRO
     Dosage: UNK, UNKNOWN

REACTIONS (9)
  - Malabsorption from injection site [Unknown]
  - Wrong technique in drug usage process [Unknown]
  - Acne [Unknown]
  - Claustrophobia [Unknown]
  - Injection site pain [Unknown]
  - Tremor [Unknown]
  - Swelling [Recovered/Resolved]
  - Injection site laceration [Unknown]
  - Injection site haemorrhage [Unknown]

NARRATIVE: CASE EVENT DATE: 20100121
